FAERS Safety Report 9382787 (Version 2)
Quarter: 2013Q4

REPORT INFORMATION
  Report Type: Spontaneous
  Country: US (occurrence: US)
  Receive Date: 20130703
  Receipt Date: 20131014
  Transmission Date: 20140711
  Serious: No
  Sender: FDA-Public Use
  Company Number: US-TEVA-414883USA

PATIENT
  Sex: Male

DRUGS (2)
  1. NUVIGIL [Suspect]
  2. GABAPENTIN [Concomitant]

REACTIONS (2)
  - Somnolence [Unknown]
  - Drug ineffective [Unknown]
